FAERS Safety Report 19835555 (Version 1)
Quarter: 2021Q3

REPORT INFORMATION
  Report Type: Other
  Country: CA (occurrence: CA)
  Receive Date: 20210916
  Receipt Date: 20210916
  Transmission Date: 20211014
  Serious: Yes (Other)
  Sender: FDA-Public Use
  Company Number: CA-CELLTRION INC.-2021CA012369

PATIENT

DRUGS (13)
  1. PREMARIN [Concomitant]
     Active Substance: ESTROGENS, CONJUGATED
     Indication: MENOPAUSE
  2. RITUXIMAB. [Suspect]
     Active Substance: RITUXIMAB
     Dosage: 1 EVERY 1 WEEKS
     Route: 042
  3. LEUCOVORIN. [Concomitant]
     Active Substance: LEUCOVORIN
  4. RITUXIMAB. [Suspect]
     Active Substance: RITUXIMAB
     Dosage: 700.0 MILLIGRAM, 1 EVERY 1 WEEKS
     Route: 042
  5. RITUXIMAB. [Suspect]
     Active Substance: RITUXIMAB
     Dosage: 630.0 MILLIGRAM, 1 EVERY 4 WEEKS
     Route: 042
  6. RITUXIMAB. [Suspect]
     Active Substance: RITUXIMAB
     Dosage: 1 EVERY 1 WEEKS
     Route: 042
  7. BENADRYL [Concomitant]
     Active Substance: DIPHENHYDRAMINE HYDROCHLORIDE
     Dosage: 50.0 MILLIGRAM
     Route: 048
  8. BOTULINUM TOXIN TYPE A [Concomitant]
     Active Substance: BOTULINUM TOXIN TYPE A
     Indication: MIGRAINE
     Dosage: 1 EVERY 3 MONTHS
     Route: 065
  9. PILOCARPINE. [Concomitant]
     Active Substance: PILOCARPINE
  10. RITUXIMAB. [Suspect]
     Active Substance: RITUXIMAB
     Dosage: 630.0 MILLIGRAM, 1 EVERY 1 WEEKS
     Route: 042
  11. TYLENOL [Concomitant]
     Active Substance: ACETAMINOPHEN
     Dosage: 650.0 MILLIGRAM
     Route: 048
  12. RITUXIMAB. [Suspect]
     Active Substance: RITUXIMAB
     Indication: NEUROSARCOIDOSIS
     Dosage: UNK
     Route: 065
  13. CICLOSPORIN [Concomitant]
     Active Substance: CYCLOSPORINE
     Route: 047

REACTIONS (3)
  - Vasculitis [Unknown]
  - Pain [Unknown]
  - Off label use [Unknown]
